FAERS Safety Report 23805094 (Version 1)
Quarter: 2024Q2

REPORT INFORMATION
  Report Type: 
  Country: AU (occurrence: AU)
  Receive Date: 20240502
  Receipt Date: 20240502
  Transmission Date: 20240715
  Serious: Yes (Other)
  Sender: FDA-Public Use
  Company Number: AU-CELLTRION INC.-2024AU009671

PATIENT

DRUGS (2)
  1. TRASTUZUMAB [Suspect]
     Active Substance: TRASTUZUMAB
     Indication: Product used for unknown indication
  2. PACLITAXEL [Concomitant]
     Active Substance: PACLITAXEL

REACTIONS (2)
  - Myocarditis [Unknown]
  - COVID-19 [Unknown]
